FAERS Safety Report 9624183 (Version 3)
Quarter: 2014Q2

REPORT INFORMATION
  Report Type: Spontaneous
  Country: US (occurrence: US)
  Receive Date: 20131015
  Receipt Date: 20140630
  Transmission Date: 20141212
  Serious: Yes (Other)
  Sender: FDA-Public Use
  Company Number: US-PFIZER INC-2013292182

PATIENT
  Age: 66 Year
  Sex: Female
  Weight: 60.3 kg

DRUGS (5)
  1. LIPITOR [Suspect]
     Indication: LOW DENSITY LIPOPROTEIN INCREASED
     Dosage: UNK
     Route: 048
     Dates: start: 2002
  2. LIPITOR [Suspect]
     Indication: CARDIOVASCULAR EVENT PROPHYLAXIS
  3. VITAMIN C [Concomitant]
     Dosage: UNK
     Dates: start: 2005
  4. MULTIVITAMINS [Concomitant]
     Dosage: UNK
     Dates: start: 2005
  5. CALCIUM AND D3 [Concomitant]
     Dosage: UNK
     Dates: start: 2005

REACTIONS (1)
  - Type 2 diabetes mellitus [Not Recovered/Not Resolved]
